FAERS Safety Report 26045394 (Version 1)
Quarter: 2025Q4

REPORT INFORMATION
  Report Type: Spontaneous
  Country: IL (occurrence: IL)
  Receive Date: 20251114
  Receipt Date: 20251114
  Transmission Date: 20260118
  Serious: Yes (Other)
  Sender: STRIDES
  Company Number: IL-STRIDES ARCOLAB LIMITED-2025SP014172

PATIENT
  Age: 33 Year
  Sex: Female

DRUGS (6)
  1. URSODIOL [Suspect]
     Active Substance: URSODIOL
     Indication: Cholestasis of pregnancy
     Dosage: 15 MILLIGRAM/KILOGRAM, QD
     Route: 065
  2. URSODIOL [Suspect]
     Active Substance: URSODIOL
     Dosage: 20 MILLIGRAM/KILOGRAM, QD INCREASED
     Route: 065
  3. URSODIOL [Suspect]
     Active Substance: URSODIOL
     Dosage: 10 GRAMS, QD TAPERED
     Route: 065
  4. CHOLESTYRAMINE [Suspect]
     Active Substance: CHOLESTYRAMINE
     Indication: Cholestasis of pregnancy
     Dosage: UNK
     Route: 065
  5. RIFAMPIN [Suspect]
     Active Substance: RIFAMPIN
     Indication: Cholestasis of pregnancy
     Dosage: 150 MILLIGRAM, BID
     Route: 065
  6. BEZAFIBRATE [Suspect]
     Active Substance: BEZAFIBRATE
     Indication: Cholestasis of pregnancy
     Dosage: 400 MILLIGRAM, QD
     Route: 065

REACTIONS (4)
  - Premature delivery [Unknown]
  - Therapy non-responder [Unknown]
  - Drug ineffective for unapproved indication [Unknown]
  - Maternal exposure during pregnancy [Unknown]
